FAERS Safety Report 8548071 (Version 3)
Quarter: 2013Q4

REPORT INFORMATION
  Report Type: Spontaneous
  Country: US (occurrence: US)
  Receive Date: 20120506
  Receipt Date: 20131031
  Transmission Date: 20140711
  Serious: Yes (Other)
  Sender: FDA-Public Use
  Company Number: US-009507513-1207USA009913

PATIENT
  Age: 52 Year
  Sex: Female

DRUGS (5)
  1. ZETIA [Suspect]
     Dosage: 10 MG, QD
     Route: 048
  2. TREDAPTIVE [Suspect]
     Dosage: 1000/20 MG, QD
     Route: 048
  3. COLESEVELAM HYDROCHLORIDE [Suspect]
     Dosage: 625 MG, QD
     Route: 048
  4. ATORVASTATIN [Suspect]
     Dosage: 20 MG, QD
     Route: 048
  5. SIMVASTATIN [Suspect]
     Dosage: 20 MG, QD
     Route: 048

REACTIONS (6)
  - Influenza like illness [Unknown]
  - Muscular weakness [Unknown]
  - Myalgia [Unknown]
  - Arthralgia [Unknown]
  - Abdominal discomfort [Unknown]
  - Muscle spasms [Unknown]
